FAERS Safety Report 14314224 (Version 1)
Quarter: 2017Q4

REPORT INFORMATION
  Report Type: Spontaneous
  Country: GB (occurrence: GB)
  Receive Date: 20171221
  Receipt Date: 20171221
  Transmission Date: 20180321
  Serious: Yes (Other)
  Sender: FDA-Public Use
  Company Number: GB-TEVA-2017-GB-835097

PATIENT
  Age: 24 Year
  Sex: Male

DRUGS (1)
  1. CLONAZEPAM. [Suspect]
     Active Substance: CLONAZEPAM
     Indication: EPILEPSY

REACTIONS (18)
  - Dizziness [Unknown]
  - Hallucinations, mixed [Unknown]
  - Disinhibition [Unknown]
  - Agitation [Unknown]
  - Slow response to stimuli [Unknown]
  - Memory impairment [Unknown]
  - Tension [Unknown]
  - Malaise [Unknown]
  - Logorrhoea [Unknown]
  - Anger [Unknown]
  - Abnormal behaviour [Unknown]
  - Ataxia [Unknown]
  - Somnambulism [Unknown]
  - Irritability [Unknown]
  - Somnolence [Unknown]
  - Balance disorder [Unknown]
  - Frustration tolerance decreased [Unknown]
  - Catatonia [Unknown]
